FAERS Safety Report 23452847 (Version 5)
Quarter: 2024Q2

REPORT INFORMATION
  Report Type: Spontaneous
  Country: FR (occurrence: FR)
  Receive Date: 20240129
  Receipt Date: 20240410
  Transmission Date: 20240716
  Serious: Yes (Other)
  Sender: FDA-Public Use
  Company Number: None

PATIENT
  Age: 71 Year
  Sex: Female
  Weight: 45 kg

DRUGS (19)
  1. ALLOPURINOL [Suspect]
     Active Substance: ALLOPURINOL
     Indication: Gout
     Dosage: 300 MG, QD
     Route: 048
     Dates: start: 20201203
  2. AMITRIPTYLINE HYDROCHLORIDE [Suspect]
     Active Substance: AMITRIPTYLINE HYDROCHLORIDE
     Indication: Occipital neuralgia
     Dosage: 10 DRP, QD
     Route: 048
  3. CYCLOPHOSPHAMIDE [Suspect]
     Active Substance: CYCLOPHOSPHAMIDE
     Indication: B-cell lymphoma
     Dosage: 1070 MG, Q3W
     Route: 042
     Dates: start: 20201211, end: 20210515
  4. CYTARABINE [Suspect]
     Active Substance: CYTARABINE
     Indication: B-cell lymphoma
     Dosage: 30 MG TOTAL
     Route: 037
     Dates: start: 20201216, end: 20201216
  5. DOXORUBICIN [Suspect]
     Active Substance: DOXORUBICIN
     Indication: B-cell lymphoma
     Dosage: 70 MG, Q3W
     Route: 042
     Dates: start: 20201216, end: 20210515
  6. METHOTREXATE [Suspect]
     Active Substance: METHOTREXATE
     Indication: B-cell lymphoma
     Dosage: 15 MG, TOTAL
     Route: 037
     Dates: start: 20201216, end: 20201216
  7. METHOTREXATE [Suspect]
     Active Substance: METHOTREXATE
     Dosage: 2090 MG, Q3W
     Route: 042
     Dates: start: 20210106, end: 20210515
  8. METHYLPREDNISOLONE [Suspect]
     Active Substance: METHYLPREDNISOLONE
     Indication: B-cell lymphoma
     Dosage: 40 MG (TOTAL)
     Route: 037
     Dates: start: 20201216, end: 20201216
  9. ONDANSETRON HYDROCHLORIDE [Suspect]
     Active Substance: ONDANSETRON HYDROCHLORIDE
     Indication: Nausea
     Dosage: DOSE OF 4 DOSAGE FORM CYCLIC (4 DF, QCY)
     Route: 048
     Dates: start: 20201211
  10. PREDNISOLONE [Suspect]
     Active Substance: PREDNISOLONE
     Indication: B-cell lymphoma
     Dosage: 360 MG, 21D
     Route: 048
     Dates: start: 20201211, end: 20210515
  11. PREDNISOLONE SODIUM METAZOATE [Suspect]
     Active Substance: PREDNISOLONE SODIUM METAZOATE
     Indication: B-cell lymphoma
     Dosage: 360 MG, Q3WTOTAL DOSE: 360 MG
     Route: 048
     Dates: start: 20201211, end: 20210515
  12. RITUXIMAB [Suspect]
     Active Substance: RITUXIMAB
     Indication: Primary mediastinal large B-cell lymphoma
     Dosage: 500 MG, Q3W
     Route: 042
     Dates: start: 20201214, end: 20210515
  13. RETACRIT [Suspect]
     Active Substance: EPOETIN ALFA-EPBX
     Indication: Anaemia
     Dosage: 1 DF, QW (STRENGHT: 30000 UI/75 ML)
     Route: 058
     Dates: start: 20201218
  14. VALACYCLOVIR HYDROCHLORIDE [Suspect]
     Active Substance: VALACYCLOVIR HYDROCHLORIDE
     Indication: Antiviral prophylaxis
     Dosage: 1000 MG, QD
     Route: 048
  15. VINCRISTINE SULFATE [Suspect]
     Active Substance: VINCRISTINE SULFATE
     Indication: B-cell lymphoma
     Dosage: 2 MG, Q3W
     Route: 042
     Dates: start: 20201211, end: 20210515
  16. ATOVAQUONE [Suspect]
     Active Substance: ATOVAQUONE
     Indication: Antifungal prophylaxis
     Dosage: 1500 MG, QD,, WELLVONE 750 MG / 5 ML, ORAL SUSPENSION IN SACHET-DOSE
     Route: 048
  17. ATOVAQUONE [Suspect]
     Active Substance: ATOVAQUONE
     Dosage: 1500 MG,WELLVONE 750 MG / 5 ML, ORAL SUSPENSION IN SACHET-DOSE
     Route: 048
  18. FILGRASTIM [Suspect]
     Active Substance: FILGRASTIM
     Indication: Product used for unknown indication
     Dosage: 5 DF, CYCLIC
     Route: 058
     Dates: start: 20201216
  19. ONDANSETRON [Suspect]
     Active Substance: ONDANSETRON
     Indication: Nausea
     Dosage: 4 DF, CYCLIC
     Route: 048
     Dates: start: 20201211

REACTIONS (1)
  - Cerebellar stroke [Not Recovered/Not Resolved]

NARRATIVE: CASE EVENT DATE: 20210127
